FAERS Safety Report 24087563 (Version 2)
Quarter: 2024Q3

REPORT INFORMATION
  Report Type: Report from Study
  Country: US (occurrence: US)
  Receive Date: 20240714
  Receipt Date: 20240718
  Transmission Date: 20241017
  Serious: Yes (Death, Other)
  Sender: ABBVIE
  Company Number: US-ABBVIE-5838601

PATIENT
  Sex: Female

DRUGS (1)
  1. CREON [Suspect]
     Active Substance: PANCRELIPASE AMYLASE\PANCRELIPASE LIPASE\PANCRELIPASE PROTEASE
     Indication: Neoplasm malignant
     Route: 048

REACTIONS (3)
  - Death [Fatal]
  - Neoplasm malignant [Unknown]
  - Diarrhoea [Unknown]
